FAERS Safety Report 7394429-X (Version None)
Quarter: 2011Q2

REPORT INFORMATION
  Report Type: 
  Country: None (occurrence: None)
  Receive Date: 20110405
  Receipt Date: 20110323
  Transmission Date: 20111010
  Serious: Yes (Hospitalization, Other)
  Sender: FDA-Public Use
  Company Number: GB-ROCHE-767750

PATIENT
  Age: 28 Year
  Sex: Female

DRUGS (2)
  1. VESANOID [Suspect]
     Indication: ACUTE LEUKAEMIA
     Route: 065
  2. VESANOID [Suspect]
     Route: 065

REACTIONS (4)
  - RETINOIC ACID SYNDROME [None]
  - CONDITION AGGRAVATED [None]
  - HYPOTENSION [None]
  - APHAGIA [None]
